FAERS Safety Report 10402076 (Version 2)
Quarter: 2014Q3

REPORT INFORMATION
  Report Type: Report from Study
  Country: US (occurrence: US)
  Receive Date: 20140822
  Receipt Date: 20140822
  Transmission Date: 20150326
  Serious: Yes (Other)
  Sender: FDA-Public Use
  Company Number: US-ACTELION-A-NJ2012-64547

PATIENT
  Age: 55 Year
  Sex: Female

DRUGS (3)
  1. FLOLAN [Suspect]
     Active Substance: EPOPROSTENOL SODIUM
     Indication: PULMONARY ARTERIAL HYPERTENSION
     Dosage: 45.6 NG/KG, PER MIN
     Route: 042
     Dates: start: 20110930
  2. TRACLEER [Suspect]
     Active Substance: BOSENTAN\BOSENTAN MONOHYDRATE
     Indication: PULMONARY ARTERIAL HYPERTENSION
     Dosage: 125 MG, BID
     Route: 048
  3. LETAIRIS [Concomitant]
     Active Substance: AMBRISENTAN

REACTIONS (18)
  - Urinary incontinence [Unknown]
  - Oral herpes [Unknown]
  - Dyspnoea [Unknown]
  - Decreased appetite [Unknown]
  - Somnolence [Unknown]
  - Fatigue [Unknown]
  - Pain in extremity [Unknown]
  - Hypoaesthesia [Unknown]
  - Loss of consciousness [Unknown]
  - Toothache [Unknown]
  - Syncope [Unknown]
  - Weight decreased [Unknown]
  - Catheterisation cardiac [Unknown]
  - Nausea [Recovering/Resolving]
  - Diarrhoea [Unknown]
  - Hot flush [Unknown]
  - Hyperhidrosis [Unknown]
  - Sinus disorder [Unknown]
